FAERS Safety Report 4822993-0 (Version None)
Quarter: 2005Q4

REPORT INFORMATION
  Report Type: 
  Country: None (occurrence: None)
  Receive Date: 20051108
  Receipt Date: 20051108
  Transmission Date: 20060501
  Serious: Yes (Disabling)
  Sender: FDA-Public Use
  Company Number: None

PATIENT
  Age: 52 Year
  Sex: Female

DRUGS (1)
  1. BOSTON SIMPLUS [Suspect]
     Indication: CORRECTIVE LENS USER
     Dates: start: 20050716, end: 20050718

REACTIONS (8)
  - APPLICATION SITE IRRITATION [None]
  - APPLICATION SITE PAIN [None]
  - CONTACT LENS COMPLICATION [None]
  - CORNEAL ABRASION [None]
  - CORNEAL EROSION [None]
  - EYE IRRITATION [None]
  - EYE PAIN [None]
  - IMPAIRED HEALING [None]
